FAERS Safety Report 20115138 (Version 2)
Quarter: 2022Q1

REPORT INFORMATION
  Report Type: Spontaneous
  Country: CA (occurrence: CA)
  Receive Date: 20211125
  Receipt Date: 20220309
  Transmission Date: 20220423
  Serious: Yes (Other)
  Sender: FDA-Public Use
  Company Number: CA-CELLTRION INC.-2021CA013318

PATIENT

DRUGS (19)
  1. INFLIXIMAB [Suspect]
     Active Substance: INFLIXIMAB
     Indication: Rheumatoid arthritis
     Dosage: 120 MG/ML Q2WEEKS SUBCUTANEOUSLY
     Route: 058
     Dates: start: 20210925
  2. INFLIXIMAB [Suspect]
     Active Substance: INFLIXIMAB
     Dosage: 120MG/ML, WEEKS
     Route: 058
     Dates: start: 20220212
  3. LEFLUNOMIDE [Concomitant]
     Active Substance: LEFLUNOMIDE
     Dosage: UNK
  4. PREDNISONE [Concomitant]
     Active Substance: PREDNISONE
  5. CLOPIDOGREL [Concomitant]
     Active Substance: CLOPIDOGREL BISULFATE
  6. ESTRADIOL [Concomitant]
     Active Substance: ESTRADIOL
  7. AMITRIPTYLINE [Concomitant]
     Active Substance: AMITRIPTYLINE
  8. RISEDRONATE SODIUM [Concomitant]
     Active Substance: RISEDRONATE SODIUM
  9. TRELEGY ELLIPTA [Concomitant]
     Active Substance: FLUTICASONE FUROATE\UMECLIDINIUM BROMIDE\VILANTEROL TRIFENATATE
     Dosage: UNK
  10. DOCUSATE SODIUM [Concomitant]
     Active Substance: DOCUSATE SODIUM
  11. PRAVASTATIN [Concomitant]
     Active Substance: PRAVASTATIN
  12. PREGABALIN [Concomitant]
     Active Substance: PREGABALIN
  13. AMLODIPINE [Concomitant]
     Active Substance: AMLODIPINE BESYLATE
  14. DEXILANT [Concomitant]
     Active Substance: DEXLANSOPRAZOLE
  15. SYNTHROID [Concomitant]
     Active Substance: LEVOTHYROXINE SODIUM
  16. CALCIUM 500+D 400 [Concomitant]
  17. HYDROCHLOROTHIAZIDE\TRIAMTERENE [Concomitant]
     Active Substance: HYDROCHLOROTHIAZIDE\TRIAMTERENE
  18. CLONAZEPAM [Concomitant]
     Active Substance: CLONAZEPAM
     Dosage: UNK, PRN
  19. ALBUTEROL [Concomitant]
     Active Substance: ALBUTEROL
     Dosage: UNK, PRN

REACTIONS (10)
  - Rheumatoid arthritis [Unknown]
  - Dysstasia [Unknown]
  - Gait disturbance [Unknown]
  - Pain in extremity [Unknown]
  - Arthralgia [Unknown]
  - Product administration error [Recovering/Resolving]
  - Accidental exposure to product [Recovering/Resolving]
  - Exposure via skin contact [Recovering/Resolving]
  - Off label use [Unknown]
  - Off label use [Unknown]

NARRATIVE: CASE EVENT DATE: 20210925
